APPROVED DRUG PRODUCT: BRONCHITOL
Active Ingredient: MANNITOL
Strength: 40MG
Dosage Form/Route: POWDER;INHALATION
Application: N202049 | Product #001
Applicant: PHARMAXIS EUROPE LTD
Approved: Oct 30, 2020 | RLD: Yes | RS: Yes | Type: RX

EXCLUSIVITY:
Code: ODE-327 | Date: Oct 30, 2027